FAERS Safety Report 4279320-X (Version None)
Quarter: 2004Q1

REPORT INFORMATION
  Report Type: 
  Country: None (occurrence: None)
  Receive Date: 20040123
  Receipt Date: 20031222
  Transmission Date: 20041129
  Serious: Yes (Hospitalization)
  Sender: FDA-Public Use
  Company Number: VIS10143.2001

PATIENT
  Age: 65 Year
  Sex: Female
  Weight: 58.9676 kg

DRUGS (7)
  1. DIOVAN [Suspect]
     Indication: HYPERTENSION
     Dosage: 80 MG DAILY PO
     Route: 048
     Dates: end: 20031221
  2. VISICOL [Suspect]
     Indication: COLONOSCOPY
     Dosage: 48 G ONCE PO
     Route: 048
  3. ZOCOR [Concomitant]
  4. CALTRATE [Concomitant]
  5. DITROPAN [Concomitant]
  6. NIASPAN [Concomitant]
  7. ASPIRIN [Concomitant]

REACTIONS (15)
  - ASTHENIA [None]
  - BACTERIA URINE IDENTIFIED [None]
  - BLOOD PRESSURE SYSTOLIC INCREASED [None]
  - COLONIC POLYP [None]
  - DYSURIA [None]
  - FEELING ABNORMAL [None]
  - HYPERTENSION [None]
  - MARKEDLY REDUCED DIETARY INTAKE [None]
  - NAUSEA [None]
  - POLLAKIURIA [None]
  - PROTEIN URINE PRESENT [None]
  - RENAL FAILURE ACUTE [None]
  - URINE OUTPUT DECREASED [None]
  - VOMITING [None]
  - WHITE BLOOD CELLS URINE POSITIVE [None]
